FAERS Safety Report 24765808 (Version 1)
Quarter: 2024Q4

REPORT INFORMATION
  Report Type: Spontaneous
  Country: PT (occurrence: PT)
  Receive Date: 20241223
  Receipt Date: 20241223
  Transmission Date: 20250114
  Serious: Yes (Hospitalization, Other)
  Sender: AMNEAL
  Company Number: PT-AMNEAL PHARMACEUTICALS-2024-AMRX-04595

PATIENT
  Age: 89 Year
  Sex: Female

DRUGS (2)
  1. AMLODIPINE BESYLATE [Suspect]
     Active Substance: AMLODIPINE BESYLATE
     Indication: Essential hypertension
     Dosage: 10 MILLIGRAM, 1 /DAY
     Route: 065
  2. FUROSEMIDE [Suspect]
     Active Substance: FUROSEMIDE
     Indication: Product used for unknown indication
     Dosage: UNK
     Route: 065

REACTIONS (1)
  - BRASH syndrome [Recovering/Resolving]
